FAERS Safety Report 8612083-3 (Version None)
Quarter: 2012Q3

REPORT INFORMATION
  Report Type: 
  Country: None (occurrence: None)
  Receive Date: 20120822
  Receipt Date: 20120814
  Transmission Date: 20120928
  Serious: Yes (Death, Life-Threatening, Hospitalization, Other)
  Sender: FDA-Public Use
  Company Number: US-MPIJNJ-2012-05708

PATIENT
  Age: 59 Year
  Sex: Female
  Weight: 67.75 kg

DRUGS (4)
  1. MELPHALAN HYDROCHLORIDE [Suspect]
     Indication: AMYLOIDOSIS
     Dosage: 0.22 MG/KG, CYCLIC
     Route: 048
     Dates: start: 20120709, end: 20120809
  2. DEXAMETHASONE [Suspect]
     Indication: AMYLOIDOSIS
     Dosage: 40 MG, CYCLIC
     Route: 048
     Dates: start: 20120709, end: 20120809
  3. VELCADE [Suspect]
     Indication: AMYLOIDOSIS
     Dosage: 1.3 MG/M2, CYCLIC
     Route: 040
     Dates: start: 20120709, end: 20120809
  4. VELCADE [Suspect]
     Dosage: 1.3 MG/M2, CYCLIC
     Route: 058

REACTIONS (4)
  - EMBOLISM [None]
  - GASTRIC HAEMORRHAGE [None]
  - CARDIAC ARREST [None]
  - MUSCULAR WEAKNESS [None]
